FAERS Safety Report 8481665 (Version 5)
Quarter: 2013Q3

REPORT INFORMATION
  Report Type: Report from Study
  Country: IT (occurrence: IT)
  Receive Date: 20120329
  Receipt Date: 20130715
  Transmission Date: 20140515
  Serious: Yes (Other)
  Sender: FDA-Public Use
  Company Number: IT-BRISTOL-MYERS SQUIBB COMPANY-16449944

PATIENT
  Age: 56 Year
  Sex: Male

DRUGS (6)
  1. SAXAGLIPTIN [Suspect]
     Indication: TYPE 2 DIABETES MELLITUS
     Dates: start: 20110310, end: 20120309
  2. METFORMIN HCL [Suspect]
     Indication: TYPE 2 DIABETES MELLITUS
  3. GLIMEPIRIDE [Suspect]
     Indication: TYPE 2 DIABETES MELLITUS
  4. PARACETAMOL [Suspect]
     Dates: start: 20111201, end: 20120309
  5. ASPIRIN [Concomitant]
  6. NIACIN [Concomitant]

REACTIONS (1)
  - Alanine aminotransferase increased [Not Recovered/Not Resolved]
